FAERS Safety Report 4290848-9 (Version None)
Quarter: 2004Q1

REPORT INFORMATION
  Report Type: 
  Country: None (occurrence: None)
  Receive Date: 20040211
  Receipt Date: 20031009
  Transmission Date: 20041129
  Serious: No
  Sender: FDA-Public Use
  Company Number: US-GLAXOSMITHKLINE-A0429695A

PATIENT
  Age: 24 Year
  Sex: Female

DRUGS (1)
  1. PAROXETINE [Suspect]
     Dosage: 30MG PER DAY
     Route: 048

REACTIONS (3)
  - DRUG EXPOSURE DURING PREGNANCY [None]
  - PARAESTHESIA [None]
  - VERTIGO [None]
